FAERS Safety Report 12728639 (Version 1)
Quarter: 2016Q3

REPORT INFORMATION
  Report Type: Spontaneous
  Country: GB (occurrence: GB)
  Receive Date: 20160909
  Receipt Date: 20160909
  Transmission Date: 20161109
  Serious: Yes (Other)
  Sender: FDA-Public Use
  Company Number: GB-TEVA-689280ACC

PATIENT
  Age: 24 Year
  Sex: Male
  Weight: 67 kg

DRUGS (17)
  1. HYDROXYZINE [Concomitant]
     Active Substance: HYDROXYZINE\HYDROXYZINE HYDROCHLORIDE
     Dosage: 1 DOSAGE FORMS DAILY;
     Dates: start: 20160225
  2. MOMETASONE [Concomitant]
     Active Substance: MOMETASONE
     Dosage: 1 DOSAGE FORMS DAILY; FOR UPTO 2WKS AT A TIME, AS ADVISE...
     Dates: start: 20160419
  3. NEORAL [Concomitant]
     Active Substance: CYCLOSPORINE
     Dosage: 240 MILLIGRAM DAILY;
     Dates: start: 20160419, end: 20160729
  4. UREA. [Concomitant]
     Active Substance: UREA
     Dosage: 2 DOSAGE FORMS DAILY;
     Dates: start: 20160225, end: 20160729
  5. NAPROXEN. [Concomitant]
     Active Substance: NAPROXEN
     Dosage: 2 DOSAGE FORMS DAILY;
     Dates: start: 20160225
  6. DIAZEPAM. [Concomitant]
     Active Substance: DIAZEPAM
     Dosage: 3 GRAM DAILY;
     Dates: start: 20160819
  7. METHOTREXATE. [Suspect]
     Active Substance: METHOTREXATE
     Dates: start: 20160729
  8. COAL TAR. [Concomitant]
     Active Substance: COAL TAR
     Dosage: APPLY 2-3 TIMES/DAY
     Dates: start: 20160225, end: 20160729
  9. EMOLLIN [Concomitant]
     Dosage: USE AS DIRECTED
     Dates: start: 20160225
  10. EPADERM [Concomitant]
     Active Substance: MINERAL OIL\PETROLATUM\WAX, EMULSIFYING
     Dosage: USE AS DIRECTED
     Dates: start: 20160225
  11. AMITRIPTYLINE HYDROCHLORIDE. [Concomitant]
     Active Substance: AMITRIPTYLINE HYDROCHLORIDE
     Indication: PAIN
     Dosage: 1 DOSAGE FORMS DAILY; EVENING
     Dates: start: 20160225, end: 20160729
  12. FOLIC ACID. [Concomitant]
     Active Substance: FOLIC ACID
     Dosage: FRIDAY AND SUNDAY
     Dates: start: 20160729
  13. ALLOPURINOL. [Concomitant]
     Active Substance: ALLOPURINOL
     Dosage: 1 DOSAGE FORMS DAILY;
     Dates: start: 20160803
  14. CALCIPOTRIOL [Concomitant]
     Active Substance: CALCIPOTRIENE
     Dosage: 1 DOSAGE FORMS DAILY; 12HRS AFTER DOVOBET TO RED/PINK ...
     Dates: start: 20160225, end: 20160729
  15. DERMOL [Concomitant]
     Active Substance: BENZALKONIUM CHLORIDE\CHLORHEXIDINE HYDROCHLORIDE\ISOPROPYL MYRISTATE\PARAFFIN
     Dosage: USE AS DIRECTED
     Dates: start: 20160225
  16. GABAPENTIN. [Concomitant]
     Active Substance: GABAPENTIN
     Dosage: 2 DOSAGE FORMS DAILY;
     Dates: start: 20160225, end: 20160729
  17. ZOPICLONE [Concomitant]
     Active Substance: ZOPICLONE
     Dosage: 1 DOSAGE FORMS DAILY; AT NIGHT
     Dates: start: 20160729

REACTIONS (4)
  - Fatigue [Unknown]
  - Anxiety [Unknown]
  - Panic attack [Unknown]
  - Paranoia [Unknown]

NARRATIVE: CASE EVENT DATE: 20160819
